FAERS Safety Report 5214712-3 (Version None)
Quarter: 2006Q4

REPORT INFORMATION
  Report Type: 
  Country: None (occurrence: None)
  Receive Date: 20061113
  Receipt Date: 20060911
  Transmission Date: 20070319
  Serious: Yes (Other)
  Sender: FDA-Public Use
  Company Number: US-JNJFOC-20060903017

PATIENT
  Age: 45 Year
  Sex: Male
  Weight: 99.7913 kg

DRUGS (2)
  1. LEVAQUIN [Suspect]
     Indication: INFECTION
     Dosage: INTRAVENOUS
     Route: 042
     Dates: start: 20060906, end: 20060906
  2. DILAUDID (HYDROMORPHONE HYDROCHLORIDE) SOLUTION FOR INJECTION [Concomitant]

REACTIONS (4)
  - BODY TEMPERATURE INCREASED [None]
  - HEADACHE [None]
  - HEART RATE INCREASED [None]
  - TREMOR [None]
